FAERS Safety Report 7501912-2 (Version None)
Quarter: 2011Q2

REPORT INFORMATION
  Report Type: 
  Country: None (occurrence: None)
  Receive Date: 20110523
  Receipt Date: 20110523
  Transmission Date: 20111010
  Serious: Yes (Hospitalization)
  Sender: FDA-Public Use
  Company Number: None

PATIENT
  Sex: Male
  Weight: 56.6996 kg

DRUGS (3)
  1. NORFLEX [Suspect]
     Indication: PAIN
     Dosage: 100MG 2 A DAY
     Dates: start: 20110107, end: 20110108
  2. AMOXICILLIN AND CLAVULANATE POTASSIUM [Suspect]
     Indication: OROPHARYNGEAL PAIN
     Dosage: 875MG/ 125MG TWICE DAILY
     Dates: start: 20100909, end: 20100911
  3. AMOXICILLIN AND CLAVULANATE POTASSIUM [Suspect]
     Indication: ANTIBIOTIC THERAPY
     Dosage: 875MG/ 125MG TWICE DAILY
     Dates: start: 20100909, end: 20100911

REACTIONS (4)
  - ABDOMINAL PAIN UPPER [None]
  - DIARRHOEA [None]
  - DRUG HYPERSENSITIVITY [None]
  - LUNG DISORDER [None]
